FAERS Safety Report 5317910-3 (Version None)
Quarter: 2007Q2

REPORT INFORMATION
  Report Type: 
  Country: None (occurrence: None)
  Receive Date: 20070507
  Receipt Date: 20070425
  Transmission Date: 20071010
  Serious: Yes (Hospitalization)
  Sender: FDA-Public Use
  Company Number: B0468459A

PATIENT
  Age: 39 Year
  Sex: Female

DRUGS (4)
  1. TELZIR [Suspect]
     Indication: HIV INFECTION
     Route: 048
     Dates: start: 20070207, end: 20070404
  2. BACTRIM [Suspect]
     Dosage: 1UNIT PER DAY
     Route: 048
     Dates: end: 20070406
  3. SPECIAFOLDINE [Suspect]
     Dosage: 1UNIT WEEKLY
     Route: 048
  4. KALETRA [Concomitant]
     Indication: HIV INFECTION
     Route: 065
     Dates: start: 20060101

REACTIONS (3)
  - BLOOD LACTATE DEHYDROGENASE INCREASED [None]
  - PANCYTOPENIA [None]
  - SERUM FERRITIN INCREASED [None]
